FAERS Safety Report 17355624 (Version 2)
Quarter: 2020Q1

REPORT INFORMATION
  Report Type: Spontaneous
  Country: JP (occurrence: JP)
  Receive Date: 20200131
  Receipt Date: 20200305
  Transmission Date: 20200409
  Serious: Yes (Hospitalization)
  Sender: FDA-Public Use
  Company Number: JP-FERRINGPH-2019FE07711

PATIENT
  Age: 30 Year
  Sex: Female

DRUGS (6)
  1. DACTIRAN [Concomitant]
     Indication: PRODUCT USED FOR UNKNOWN INDICATION
     Dosage: UNK
     Route: 065
     Dates: start: 20190831, end: 20191007
  2. DUPHASTON [Concomitant]
     Active Substance: DYDROGESTERONE
     Indication: PROGESTIN REPLACEMENT THERAPY
     Dosage: UNK
     Route: 065
     Dates: start: 20190906, end: 20191017
  3. MINOPHAGEN C [CYSTEINE;GLYCINE;GLYCYRRHIZIC ACID] [Concomitant]
     Indication: PRODUCT USED FOR UNKNOWN INDICATION
     Dosage: UNK
     Route: 065
     Dates: start: 20190906, end: 20191011
  4. LUTORAL [Concomitant]
     Active Substance: CHLORMADINONE ACETATE
     Indication: PROGESTIN REPLACEMENT THERAPY
     Dosage: UNK
     Route: 065
     Dates: start: 20190817, end: 20191017
  5. ESTRANA [Concomitant]
     Active Substance: ESTRADIOL
     Indication: PROGESTIN REPLACEMENT THERAPY
     Dosage: UNK
     Route: 065
     Dates: start: 20190804, end: 20190930
  6. LUTINUS [Suspect]
     Active Substance: PROGESTERONE
     Indication: PROGESTIN REPLACEMENT THERAPY
     Dosage: 300 MG
     Route: 067
     Dates: start: 20190817, end: 20190903

REACTIONS (1)
  - Hepatic function abnormal [Recovered/Resolved]

NARRATIVE: CASE EVENT DATE: 20190901
